FAERS Safety Report 6752565-2 (Version None)
Quarter: 2010Q2

REPORT INFORMATION
  Report Type: 
  Country: None (occurrence: None)
  Receive Date: 20100602
  Receipt Date: 20100521
  Transmission Date: 20101027
  Serious: Yes (Other)
  Sender: FDA-Public Use
  Company Number: JP-TYCO HEALTHCARE/MALLINCKRODT-T201001343

PATIENT
  Age: 64 Year
  Sex: Male

DRUGS (1)
  1. SODIUM IODIDE I 131 [Suspect]
     Indication: ADJUVANT THERAPY
     Dosage: UNK
     Route: 048

REACTIONS (2)
  - METASTASES TO LYMPH NODES [None]
  - TREATMENT FAILURE [None]
